FAERS Safety Report 10931647 (Version 1)
Quarter: 2015Q1

REPORT INFORMATION
  Report Type: Spontaneous
  Country: US (occurrence: US)
  Receive Date: 20150319
  Receipt Date: 20150319
  Transmission Date: 20150721
  Serious: Yes (Hospitalization, Other)
  Sender: FDA-Public Use
  Company Number: US-TEVA-547707USA

PATIENT
  Age: 35 Year
  Sex: Female

DRUGS (14)
  1. BUTALBITAL, ACETAMINOPHEN [Concomitant]
  2. CITALOPRAM [Concomitant]
     Active Substance: CITALOPRAM HYDROBROMIDE
  3. VICODIN [Concomitant]
     Active Substance: ACETAMINOPHEN\HYDROCODONE BITARTRATE
  4. LORTAB [Concomitant]
     Active Substance: ACETAMINOPHEN\HYDROCODONE BITARTRATE
     Dosage: 10-500 MG
  5. FIORICET [Concomitant]
     Active Substance: ACETAMINOPHEN\BUTALBITAL\CAFFEINE
  6. COPAXONE [Suspect]
     Active Substance: GLATIRAMER ACETATE
     Dates: start: 201203
  7. AMITRIPTYLINE [Concomitant]
     Active Substance: AMITRIPTYLINE
     Dates: start: 20140213
  8. TYLENOL [Concomitant]
     Active Substance: ACETAMINOPHEN
  9. COPAXONE [Suspect]
     Active Substance: GLATIRAMER ACETATE
     Route: 058
  10. MIRTAZAPINE. [Concomitant]
     Active Substance: MIRTAZAPINE
  11. DICLOXACILLIN [Concomitant]
     Active Substance: DICLOXACILLIN
  12. IBUPROFEN. [Concomitant]
     Active Substance: IBUPROFEN
  13. NAPROXEN. [Concomitant]
     Active Substance: NAPROXEN
     Dates: start: 20141223
  14. AMITRIPTYLINE [Concomitant]
     Active Substance: AMITRIPTYLINE
     Dates: start: 20120127

REACTIONS (2)
  - Migraine [Not Recovered/Not Resolved]
  - Intervertebral disc protrusion [Not Recovered/Not Resolved]

NARRATIVE: CASE EVENT DATE: 201503
